FAERS Safety Report 15230692 (Version 7)
Quarter: 2020Q2

REPORT INFORMATION
  Report Type: Report from Study
  Country: US (occurrence: US)
  Receive Date: 20180802
  Receipt Date: 20200410
  Transmission Date: 20200713
  Serious: Yes (Other)
  Sender: FDA-Public Use
  Company Number: US-SA-2018SA208082

PATIENT
  Age: 67 Year
  Sex: Male

DRUGS (8)
  1. DUPILUMAB [Suspect]
     Active Substance: DUPILUMAB
     Indication: DERMATITIS ATOPIC
     Dosage: 600 MG, 1X
     Route: 058
  2. KETOCONAZOLE. [Concomitant]
     Active Substance: KETOCONAZOLE
  3. SIMVASTATIN. [Concomitant]
     Active Substance: SIMVASTATIN
  4. ELIQUIS [Concomitant]
     Active Substance: APIXABAN
  5. HYDROXYCHLOROQUINE [Concomitant]
     Active Substance: HYDROXYCHLOROQUINE
  6. DUPILUMAB [Suspect]
     Active Substance: DUPILUMAB
     Dosage: 300 MG, QOW
     Route: 058
     Dates: start: 20180628
  7. DUPILUMAB [Suspect]
     Active Substance: DUPILUMAB
     Dosage: 300 MG, QOW
     Route: 058
     Dates: start: 201904
  8. CICLOPIROX. [Concomitant]
     Active Substance: CICLOPIROX

REACTIONS (11)
  - Rash [Unknown]
  - Dermatitis atopic [Not Recovered/Not Resolved]
  - Sinus disorder [Unknown]
  - Unevaluable event [Unknown]
  - Blood alkaline phosphatase increased [Unknown]
  - Spinal fusion surgery [Unknown]
  - Limb discomfort [Unknown]
  - Malaise [Unknown]
  - Headache [Not Recovered/Not Resolved]
  - Pruritus [Unknown]
  - Surgery [Unknown]

NARRATIVE: CASE EVENT DATE: 202003
